FAERS Safety Report 25370125 (Version 4)
Quarter: 2025Q3

REPORT INFORMATION
  Report Type: Report from Study
  Country: US (occurrence: US)
  Receive Date: 20250528
  Receipt Date: 20250702
  Transmission Date: 20251021
  Serious: Yes (Hospitalization)
  Sender: SUNOVION
  Company Number: US-SMPA-2025SPA006347

PATIENT

DRUGS (1)
  1. ORGOVYX [Suspect]
     Active Substance: RELUGOLIX
     Indication: Prostate cancer
     Dosage: 120 MG, QD (TAKE 1 TABLET BY MOUTH ONCE DAILY AROUND THE SAME TIME EACH DAY)
     Route: 048

REACTIONS (2)
  - Cardiac disorder [Unknown]
  - Product dose omission issue [Unknown]
